FAERS Safety Report 8589971 (Version 5)
Quarter: 2012Q4

REPORT INFORMATION
  Report Type: 
  Country: US (occurrence: US)
  Receive Date: 20120601
  Receipt Date: 20121115
  Transmission Date: 20130627
  Serious: Yes (Hospitalization, Other)
  Sender: FDA-Public Use
  Company Number: US-JNJFOC-20120518226

PATIENT
  Age: 65 None
  Sex: Male
  Weight: 119.75 kg

DRUGS (18)
  1. REMICADE [Suspect]
     Indication: CROHN^S DISEASE
     Route: 042
     Dates: start: 20040909, end: 2010
  2. REMICADE [Suspect]
     Indication: CROHN^S DISEASE
     Route: 042
     Dates: start: 2010
  3. METHOTREXATE [Suspect]
     Indication: INTERVERTEBRAL DISC PROTRUSION
     Route: 048
     Dates: start: 2011, end: 2011
  4. LEVEMIR [Suspect]
     Indication: DIABETES MELLITUS
     Dosage: 52 units/ at night/subcutaneous
     Route: 058
  5. NOVOLOG [Suspect]
     Indication: DIABETES MELLITUS
     Dosage: 40 units/solution before meals
     Route: 058
     Dates: start: 2011, end: 2011
  6. COLCHICINE [Suspect]
     Indication: GOUT
     Route: 048
     Dates: start: 201205
  7. FLOMAX [Concomitant]
     Route: 065
  8. SIMVASTATIN [Concomitant]
     Route: 065
  9. ONGLYZA [Concomitant]
     Indication: TYPE 2 DIABETES MELLITUS
     Route: 065
  10. LISINOPRIL [Concomitant]
     Route: 065
  11. HCTZ [Concomitant]
     Route: 065
  12. CYMBALTA [Concomitant]
     Route: 065
  13. LYRICA [Concomitant]
     Route: 065
  14. DILAUDID [Concomitant]
     Route: 065
  15. AMBIEN [Concomitant]
     Route: 065
  16. VALIUM [Concomitant]
     Indication: DEPRESSION
     Route: 065
  17. NEXIUM [Concomitant]
     Route: 065
  18. HUMALOG [Concomitant]
     Indication: TYPE 2 DIABETES MELLITUS
     Dosage: Dose: 75/25, 27 units in the morning and 25 units before dinner
     Route: 065

REACTIONS (24)
  - Benign prostatic hyperplasia [Unknown]
  - Bursitis infective [Recovered/Resolved]
  - Arthritis [Recovering/Resolving]
  - Obesity [Unknown]
  - Cholelithiasis [Recovered/Resolved]
  - Perineal cyst [Recovered/Resolved]
  - Oxygen saturation decreased [Recovered/Resolved]
  - Fistula [Recovered/Resolved]
  - Convulsion [Not Recovered/Not Resolved]
  - Diabetes mellitus [Not Recovered/Not Resolved]
  - Intervertebral disc protrusion [Recovering/Resolving]
  - Gout [Recovering/Resolving]
  - Abnormal loss of weight [Not Recovered/Not Resolved]
  - Abasia [Not Recovered/Not Resolved]
  - Intervertebral disc degeneration [Not Recovered/Not Resolved]
  - Heart rate increased [Not Recovered/Not Resolved]
  - Sepsis [Recovering/Resolving]
  - Gastrooesophageal reflux disease [Unknown]
  - Spinal osteoarthritis [Unknown]
  - Pyrexia [Unknown]
  - Neck pain [Unknown]
  - Infection [Recovered/Resolved]
  - Diarrhoea [Not Recovered/Not Resolved]
  - Decreased immune responsiveness [Not Recovered/Not Resolved]
